FAERS Safety Report 11755846 (Version 1)
Quarter: 2015Q4

REPORT INFORMATION
  Report Type: Spontaneous
  Country: US (occurrence: US)
  Receive Date: 20151119
  Receipt Date: 20151119
  Transmission Date: 20160304
  Serious: No
  Sender: FDA-Public Use
  Company Number: US-EDGEMONT-2015EDG00031

PATIENT
  Sex: Male
  Weight: 104.31 kg

DRUGS (10)
  1. BUPROPION. [Suspect]
     Active Substance: BUPROPION
     Indication: DEPRESSION
     Dosage: 300 MG, 1X/DAY
     Route: 048
  2. PEPCID [Concomitant]
     Active Substance: FAMOTIDINE
  3. CIALIS [Concomitant]
     Active Substance: TADALAFIL
     Dosage: 5 MG, 1X/DAY
  4. FISH OIL [Concomitant]
     Active Substance: FISH OIL
  5. ASPIRIN. [Concomitant]
     Active Substance: ASPIRIN
  6. UNSPECIFIED BLOOD PRESSURE MEDICATION [Concomitant]
     Active Substance: UNSPECIFIED INGREDIENT
  7. ANDROGEL [Concomitant]
     Active Substance: TESTOSTERONE
  8. PREVACID [Concomitant]
     Active Substance: LANSOPRAZOLE
  9. UNSPECIFIED CHOLESTEROL MEDICATION [Concomitant]
  10. ZETIA [Concomitant]
     Active Substance: EZETIMIBE

REACTIONS (1)
  - Drug ineffective [Not Recovered/Not Resolved]
